FAERS Safety Report 14561225 (Version 1)
Quarter: 2018Q1

REPORT INFORMATION
  Report Type: Spontaneous
  Country: US (occurrence: US)
  Receive Date: 20180221
  Receipt Date: 20180221
  Transmission Date: 20180509
  Serious: No
  Sender: FDA-Public Use
  Company Number: None

PATIENT
  Age: 72 Year
  Sex: Female
  Weight: 86.18 kg

DRUGS (1)
  1. CELECOXIB 200 [Suspect]
     Active Substance: CELECOXIB

REACTIONS (5)
  - Asthenia [None]
  - Dyspnoea [None]
  - Weight increased [None]
  - Chest pain [None]
  - Insurance issue [None]
